FAERS Safety Report 7746832-3 (Version None)
Quarter: 2011Q3

REPORT INFORMATION
  Report Type: 
  Country: None (occurrence: None)
  Receive Date: 20110913
  Receipt Date: 20110902
  Transmission Date: 20111222
  Serious: Yes (Life-Threatening, Hospitalization)
  Sender: FDA-Public Use
  Company Number: IT-JNJFOC-20110806729

PATIENT
  Age: 37 Year
  Sex: Male

DRUGS (9)
  1. MEPRAL [Concomitant]
     Route: 048
  2. REMICADE [Suspect]
     Indication: ANKYLOSING SPONDYLITIS
     Route: 042
     Dates: end: 20110608
  3. REMICADE [Suspect]
     Route: 042
     Dates: start: 20090303
  4. PREDNISONE [Concomitant]
     Route: 048
  5. NIMESULIDE [Concomitant]
     Route: 048
  6. LOVASTATIN [Concomitant]
     Route: 048
  7. METHOTREXATE [Suspect]
     Indication: ANKYLOSING SPONDYLITIS
     Dosage: 7 TABLETS
     Route: 048
     Dates: start: 20090101, end: 20090209
  8. ALLOPURINOL [Concomitant]
     Route: 048
  9. CHOLECALCIFEROL [Concomitant]
     Dosage: 25 DROPS
     Route: 048

REACTIONS (1)
  - LARYNGEAL CANCER [None]
